FAERS Safety Report 5696894-2 (Version None)
Quarter: 2008Q2

REPORT INFORMATION
  Report Type: 
  Country: None (occurrence: None)
  Receive Date: 20080408
  Receipt Date: 20080327
  Transmission Date: 20081010
  Serious: Yes (Death, Other)
  Sender: FDA-Public Use
  Company Number: HQWYE989203OCT03

PATIENT
  Sex: Female

DRUGS (5)
  1. PREMPRO [Suspect]
     Dosage: UNSPECIFIED
     Route: 048
  2. MEDROXYPROGESTERONE ACETATE [Suspect]
  3. CONJUGATED ESTROGENS [Suspect]
  4. NORETHINDRONE ACETATE [Suspect]
  5. PREMPRO/PREMPHASE [Suspect]

REACTIONS (1)
  - BREAST CANCER [None]
